FAERS Safety Report 25995376 (Version 1)
Quarter: 2025Q4

REPORT INFORMATION
  Report Type: Spontaneous
  Country: US (occurrence: None)
  Receive Date: 20251101
  Receipt Date: 20251101
  Transmission Date: 20260119
  Serious: Yes (Hospitalization)
  Sender: FDA-CTU
  Company Number: None

PATIENT
  Sex: Female

DRUGS (2)
  1. NEXPLANON [Suspect]
     Active Substance: ETONOGESTREL
     Indication: Contraceptive implant
     Dosage: 68 MG ONCE INTRA-UTERINE
     Route: 015
  2. MIRENA IUD SYS [Concomitant]

REACTIONS (5)
  - Mental disorder [None]
  - Intrauterine contraception [None]
  - Intra-uterine contraceptive device removal [None]
  - Anxiety [None]
  - Suicidal ideation [None]
